FAERS Safety Report 20759718 (Version 1)
Quarter: 2022Q2

REPORT INFORMATION
  Report Type: Spontaneous
  Country: US (occurrence: US)
  Receive Date: 20220427
  Receipt Date: 20220427
  Transmission Date: 20220720
  Serious: No
  Sender: FDA-Public Use
  Company Number: US-VIATRISIRMSP-5602

PATIENT
  Age: 26 Year
  Sex: Female

DRUGS (3)
  1. TRETINOIN [Suspect]
     Active Substance: TRETINOIN
     Indication: Acne
     Route: 061
     Dates: start: 20220201, end: 2022
  2. TRETINOIN [Suspect]
     Active Substance: TRETINOIN
     Route: 061
     Dates: start: 20220412, end: 20220414
  3. CLINDAMYCIN [Concomitant]
     Active Substance: CLINDAMYCIN
     Indication: Acne
     Route: 065

REACTIONS (3)
  - Pain of skin [Recovered/Resolved]
  - Rash [Recovered/Resolved]
  - Product odour abnormal [Unknown]

NARRATIVE: CASE EVENT DATE: 20220201
